FAERS Safety Report 4538444-X (Version None)
Quarter: 2004Q4

REPORT INFORMATION
  Report Type: 
  Country: None (occurrence: None)
  Receive Date: 20041227
  Receipt Date: 20041214
  Transmission Date: 20050328
  Serious: Yes (Hospitalization, Other)
  Sender: FDA-Public Use
  Company Number: GB-JNJFOC-20040900519

PATIENT
  Sex: Male

DRUGS (4)
  1. RISPERDAL CONSTA [Suspect]
     Route: 030
  2. HALOPERIDOL [Concomitant]
     Dosage: NOCTE
  3. KWELLS [Concomitant]
     Dosage: AS REQUIRED
  4. PROCYCLIDINE HYDROCHLORIDE 2MG TAB [Concomitant]
     Dosage: AS REQUIRED

REACTIONS (4)
  - BLOOD IMMUNOGLOBULIN A INCREASED [None]
  - LYMPHADENOPATHY [None]
  - SINUS BRADYCARDIA [None]
  - WHITE BLOOD CELL COUNT DECREASED [None]
